FAERS Safety Report 21071133 (Version 3)
Quarter: 2022Q3

REPORT INFORMATION
  Report Type: Spontaneous
  Country: CN (occurrence: CN)
  Receive Date: 20220712
  Receipt Date: 20220818
  Transmission Date: 20221027
  Serious: Yes (Hospitalization, Other)
  Sender: FDA-Public Use
  Company Number: CN-HORIZON THERAPEUTICS-HZN-2022-005012

PATIENT

DRUGS (9)
  1. RAVICTI [Suspect]
     Active Substance: GLYCEROL PHENYLBUTYRATE
     Indication: Hyperammonaemia
     Dosage: 1 ML, TID
     Route: 048
     Dates: start: 20220612
  2. ARGININE [Concomitant]
     Active Substance: ARGININE
     Indication: Product used for unknown indication
     Dosage: UNK
     Route: 042
     Dates: start: 2021
  3. LEVOCARNITINE [Concomitant]
     Active Substance: LEVOCARNITINE
     Indication: Product used for unknown indication
     Route: 048
  4. LACTULOSE [Concomitant]
     Active Substance: LACTULOSE
     Indication: Product used for unknown indication
  5. CHOLECALCIFEROL [Concomitant]
     Active Substance: CHOLECALCIFEROL
     Indication: Product used for unknown indication
     Dosage: UNK
     Route: 048
     Dates: start: 2021
  6. GLUTATHIONE [Concomitant]
     Active Substance: GLUTATHIONE
     Indication: Product used for unknown indication
  7. BATROXOBIN [Concomitant]
     Active Substance: BATROXOBIN
     Indication: Product used for unknown indication
  8. VITAMIN B6 [Concomitant]
     Active Substance: PYRIDOXINE HYDROCHLORIDE
     Indication: Antiemetic supportive care
  9. CIMETIDINE [Concomitant]
     Active Substance: CIMETIDINE
     Indication: Gastric pH increased

REACTIONS (3)
  - Decreased appetite [Recovering/Resolving]
  - Upper gastrointestinal haemorrhage [Unknown]
  - Vomiting [Recovering/Resolving]

NARRATIVE: CASE EVENT DATE: 20220614
